FAERS Safety Report 9542184 (Version 2)
Quarter: 2014Q1

REPORT INFORMATION
  Report Type: Spontaneous
  Country: US (occurrence: None)
  Receive Date: 20130524
  Receipt Date: 20130724
  Transmission Date: 20141002
  Serious: No
  Sender: FDA-Public Use
  Company Number: PHEH2013US003488

PATIENT
  Age: 33 Year
  Sex: Female
  Weight: 68 kg

DRUGS (1)
  1. GILENYA [Suspect]
     Indication: MULTIPLE SCLEROSIS
     Route: 048
     Dates: start: 20130128, end: 20130224

REACTIONS (7)
  - Feeling abnormal [None]
  - Insomnia [None]
  - Headache [None]
  - Stress [None]
  - Fatigue [None]
  - Vertigo [None]
  - Hypotension [None]
